FAERS Safety Report 10065142 (Version 1)
Quarter: 2014Q1

REPORT INFORMATION
  Report Type: Spontaneous
  Country: US (occurrence: None)
  Receive Date: 20140328
  Receipt Date: 20140328
  Transmission Date: 20141002
  Serious: No
  Sender: FDA-Public Use
  Company Number: CABO-14003905

PATIENT
  Age: 83 Year
  Sex: Male
  Weight: 93 kg

DRUGS (13)
  1. COMETRIQ [Suspect]
     Indication: THYROID CANCER
     Route: 048
     Dates: start: 20131225, end: 20140116
  2. CALCITRIOL (CALCITRIOL) [Concomitant]
  3. DIGOXIN (DIGOXIN) [Concomitant]
  4. BUMETANIDE (BUMETANIDE) [Concomitant]
  5. LEVOTHYROXINE (LEVOTHYROXINE) [Concomitant]
  6. TAMSULOSIN (TAMSULOSIN) [Concomitant]
  7. WARFARIN (WARFARIN) [Concomitant]
  8. CALCIUM (CALCIUM) [Concomitant]
  9. ANTACID (CALCIUM CARBONATE) [Concomitant]
  10. SPIRONOLACTONE (SPIRONOLACTONE) [Concomitant]
  11. FLUNISOLIDE (FLUNISOLIDE) [Concomitant]
  12. LATANOPROST (LATANOPROST) (NONE) [Concomitant]
  13. ANDROGEL (TESTOSTERONE) [Concomitant]

REACTIONS (4)
  - Local swelling [None]
  - Visual impairment [None]
  - Palmar-plantar erythrodysaesthesia syndrome [None]
  - Stomatitis [None]
